FAERS Safety Report 9538279 (Version 1)
Quarter: 2013Q3

REPORT INFORMATION
  Report Type: Other
  Country: US (occurrence: US)
  Receive Date: 20130920
  Receipt Date: 20130920
  Transmission Date: 20140515
  Serious: Yes (Life-Threatening)
  Sender: FDA-Public Use
  Company Number: US-BRISTOL-MYERS SQUIBB COMPANY-19380922

PATIENT
  Age: 67 Year
  Sex: Male

DRUGS (1)
  1. IFOSFAMIDE [Suspect]
     Indication: DIFFUSE LARGE B-CELL LYMPHOMA RECURRENT
     Dosage: 1 DF= 5G/M2

REACTIONS (2)
  - Encephalopathy [Recovered/Resolved]
  - Renal failure [Recovered/Resolved]
